FAERS Safety Report 6004093-X (Version None)
Quarter: 2008Q4

REPORT INFORMATION
  Report Type: 
  Country: None (occurrence: None)
  Receive Date: 20081212
  Receipt Date: 20081205
  Transmission Date: 20090506
  Serious: Yes (Hospitalization)
  Sender: FDA-Public Use
  Company Number: 2008SP020033

PATIENT
  Age: 68 Year
  Sex: Male

DRUGS (2)
  1. PEG-INTRON [Suspect]
     Indication: HEPATITIS C
     Dosage: SC
     Route: 058
     Dates: start: 20080301, end: 20080501
  2. REBETOL [Suspect]
     Indication: HEPATITIS C
     Dosage: PO
     Route: 048
     Dates: start: 20080301, end: 20080501

REACTIONS (3)
  - LYMPHOCYTIC HYPOPHYSITIS [None]
  - PSORIASIS [None]
  - TYPE 1 DIABETES MELLITUS [None]
